FAERS Safety Report 17911510 (Version 1)
Quarter: 2020Q2

REPORT INFORMATION
  Report Type: Spontaneous
  Country: US (occurrence: US)
  Receive Date: 20200618
  Receipt Date: 20200618
  Transmission Date: 20200714
  Serious: No
  Sender: FDA-Public Use
  Company Number: None

PATIENT
  Age: 30 Month
  Sex: Male
  Weight: 15.3 kg

DRUGS (5)
  1. FLOVENT HFA [Concomitant]
     Active Substance: FLUTICASONE PROPIONATE
  2. MONTELUKAST SOD [Concomitant]
     Active Substance: MONTELUKAST SODIUM
  3. VIBRAMYCIN [Suspect]
     Active Substance: DOXYCYCLINE
     Indication: PROPHYLAXIS
     Dosage: ?          QUANTITY:10 ML;OTHER FREQUENCY:ONE TIME DOSE;?
     Route: 048
     Dates: start: 20200605, end: 20200606
  4. VIBRAMYCIN [Suspect]
     Active Substance: DOXYCYCLINE
     Indication: ARTHROPOD BITE
     Dosage: ?          QUANTITY:10 ML;OTHER FREQUENCY:ONE TIME DOSE;?
     Route: 048
     Dates: start: 20200605, end: 20200606
  5. CHILDREN^S COMPLETE MULTIVITAMIN [Concomitant]

REACTIONS (1)
  - Tooth discolouration [None]

NARRATIVE: CASE EVENT DATE: 20200615
